FAERS Safety Report 14231896 (Version 1)
Quarter: 2017Q4

REPORT INFORMATION
  Report Type: Report from Study
  Country: US (occurrence: US)
  Receive Date: 20171128
  Receipt Date: 20171128
  Transmission Date: 20180321
  Serious: Yes (Hospitalization)
  Sender: FDA-Public Use
  Company Number: US-BAYER-2017-223147

PATIENT
  Age: 70 Year
  Sex: Female

DRUGS (1)
  1. STIVARGA [Suspect]
     Active Substance: REGORAFENIB
     Indication: METASTASIS
     Dosage: 160 MG (21 ON 7 OFF)
     Route: 048
     Dates: start: 20170120

REACTIONS (4)
  - Limb injury [None]
  - Product use in unapproved indication [None]
  - Off label use [None]
  - Skin exfoliation [None]
